FAERS Safety Report 9825590 (Version 1)
Quarter: 2014Q1

REPORT INFORMATION
  Report Type: Spontaneous
  Country: US (occurrence: None)
  Receive Date: 20140115
  Receipt Date: 20140115
  Transmission Date: 20141002
  Serious: Yes (Life-Threatening)
  Sender: FDA-Public Use
  Company Number: None

PATIENT
  Age: 68 Year
  Sex: Male
  Weight: 117.94 kg

DRUGS (1)
  1. HUMALOG [Suspect]
     Indication: BLOOD GLUCOSE INCREASED
     Dosage: 70 URIT VIA INSULIN PUMP
     Dates: start: 20131128, end: 20131129

REACTIONS (5)
  - Vomiting [None]
  - Dizziness [None]
  - Feeling abnormal [None]
  - Drug ineffective [None]
  - Product quality issue [None]
